FAERS Safety Report 15213315 (Version 1)
Quarter: 2018Q4

REPORT INFORMATION
  Report Type: Spontaneous
  Country: US (occurrence: US)
  Receive Date: 20180730
  Receipt Date: 20180730
  Transmission Date: 20190204
  Serious: Yes (Hospitalization, Other)
  Sender: FDA-Public Use
  Company Number: US-STRIDES ARCOLAB LIMITED-2018SP006178

PATIENT

DRUGS (2)
  1. AMLODIPINE [Suspect]
     Active Substance: AMLODIPINE BESYLATE
     Indication: PRODUCT USED FOR UNKNOWN INDICATION
     Dosage: UNK (20 TABLETS)
     Route: 048
  2. CARVEDILOL. [Suspect]
     Active Substance: CARVEDILOL
     Indication: PRODUCT USED FOR UNKNOWN INDICATION
     Dosage: UNK (20 TABLETS)
     Route: 048

REACTIONS (6)
  - Shock [Recovered/Resolved]
  - Metabolic acidosis [Recovered/Resolved]
  - Hypotension [Recovered/Resolved]
  - Sinus bradycardia [Recovered/Resolved]
  - Overdose [Recovered/Resolved]
  - Lethargy [Recovered/Resolved]
